FAERS Safety Report 8321380 (Version 2)
Quarter: 2013Q4

REPORT INFORMATION
  Report Type: Spontaneous
  Country: US (occurrence: US)
  Receive Date: 20120104
  Receipt Date: 20131121
  Transmission Date: 20140711
  Serious: Yes (Hospitalization)
  Sender: FDA-Public Use
  Company Number: US-GLAXOSMITHKLINE-A0934690A

PATIENT
  Age: 34 Year
  Sex: Male

DRUGS (2)
  1. AVANDIA [Suspect]
     Indication: DIABETES MELLITUS
     Route: 048
     Dates: start: 200606, end: 200607
  2. AVANDAMET [Suspect]
     Indication: DIABETES MELLITUS
     Route: 048
     Dates: start: 200607, end: 200612

REACTIONS (5)
  - Myocardial infarction [Not Recovered/Not Resolved]
  - Blood cholesterol increased [Unknown]
  - Hypertension [Unknown]
  - Cardiac disorder [Unknown]
  - Chest pain [Unknown]
